FAERS Safety Report 13837599 (Version 1)
Quarter: 2017Q3

REPORT INFORMATION
  Report Type: Report from Study
  Country: US (occurrence: US)
  Receive Date: 20170805
  Receipt Date: 20170805
  Transmission Date: 20171127
  Serious: Yes (Other)
  Sender: FDA-Public Use
  Company Number: US-ROCHE-1973980

PATIENT
  Age: 70 Year
  Sex: Female

DRUGS (2)
  1. RITUXIMAB. [Suspect]
     Active Substance: RITUXIMAB
     Dosage: 12 MONTHS LATER: 635 MG, 4 DOS E AT 1 WEEK INTERVAL
     Route: 042
  2. RITUXIMAB. [Suspect]
     Active Substance: RITUXIMAB
     Indication: AUTOIMMUNE RETINOPATHY
     Dosage: 635 MG, 4 DOSE AT 1 WEEK INTERVAL
     Route: 042
     Dates: start: 201409

REACTIONS (3)
  - Ophthalmic herpes zoster [Unknown]
  - Sinusitis [Unknown]
  - Scleritis [Unknown]
